FAERS Safety Report 5025707-7 (Version None)
Quarter: 2006Q2

REPORT INFORMATION
  Report Type: 
  Country: None (occurrence: None)
  Receive Date: 20060427
  Receipt Date: 20050527
  Transmission Date: 20061013
  Serious: Yes (Other)
  Sender: FDA-Public Use
  Company Number: 2005082209

PATIENT
  Age: 50 Year
  Sex: Male
  Weight: 70.3075 kg

DRUGS (3)
  1. AZITHROMYCIN [Suspect]
     Indication: BLEPHARITIS
     Dosage: 250 MG, 1 IN 1 D, ORAL
     Route: 048
  2. AZITHROMYCIN [Suspect]
     Indication: BRONCHITIS
     Dosage: 250 MG, 1 IN 1 D, ORAL
     Route: 048
  3. AZITHROMYCIN [Suspect]
     Indication: SINUSITIS
     Dosage: 250 MG, 1 IN 1 D, ORAL
     Route: 048

REACTIONS (2)
  - ABDOMINAL PAIN UPPER [None]
  - TINNITUS [None]
